FAERS Safety Report 18688247 (Version 8)
Quarter: 2021Q3

REPORT INFORMATION
  Report Type: Report from Study
  Country: US (occurrence: US)
  Receive Date: 20201231
  Receipt Date: 20210923
  Transmission Date: 20211014
  Serious: Yes (Hospitalization, Other)
  Sender: FDA-Public Use
  Company Number: US-TAKEDA-US202009233

PATIENT
  Age: 62 Year
  Sex: Female

DRUGS (1)
  1. HUMAN NORMAL IMMUNOGLOBULIN; LIQUID [Suspect]
     Active Substance: HUMAN IMMUNOGLOBULIN G
     Indication: IMMUNODEFICIENCY COMMON VARIABLE
     Dosage: UNK
     Route: 042

REACTIONS (35)
  - Coeliac disease [Unknown]
  - Muscle atrophy [Unknown]
  - Eye disorder [Unknown]
  - Pulmonary mass [Recovering/Resolving]
  - Gastrointestinal disorder [Unknown]
  - Influenza [Unknown]
  - Dyspnoea [Unknown]
  - Migraine [Unknown]
  - Dry throat [Unknown]
  - Secretion discharge [Unknown]
  - Multiple allergies [Unknown]
  - Dry mouth [Unknown]
  - Incorrect drug administration rate [Unknown]
  - Hernia [Not Recovered/Not Resolved]
  - Choking [Recovering/Resolving]
  - Gluten sensitivity [Unknown]
  - Fatigue [Unknown]
  - Bedridden [Unknown]
  - Diaphragmatic injury [Unknown]
  - Chronic obstructive pulmonary disease [Unknown]
  - Muscle tightness [Unknown]
  - Panic attack [Unknown]
  - Pain [Unknown]
  - Autoimmune disorder [Unknown]
  - Blood glucose increased [Unknown]
  - Weight increased [Unknown]
  - Vomiting [Unknown]
  - Haematoma [Unknown]
  - Anxiety [Unknown]
  - Hypothyroidism [Unknown]
  - Illness [Unknown]
  - Bilevel positive airway pressure [Unknown]
  - Sinusitis [Unknown]
  - Heart rate increased [Unknown]
  - Cough [Unknown]

NARRATIVE: CASE EVENT DATE: 20210320
